FAERS Safety Report 17885895 (Version 2)
Quarter: 2020Q3

REPORT INFORMATION
  Report Type: Spontaneous
  Country: US (occurrence: US)
  Receive Date: 20200611
  Receipt Date: 20200821
  Transmission Date: 20201103
  Serious: Yes (Other)
  Sender: FDA-Public Use
  Company Number: US-ASTRAZENECA-2020SE64723

PATIENT
  Age: 26116 Day
  Sex: Male
  Weight: 89.8 kg

DRUGS (1)
  1. BYDUREON BCISE [Suspect]
     Active Substance: EXENATIDE
     Indication: DIABETES MELLITUS
     Dosage: 2MG/ 0.85G, WEEK
     Route: 065
     Dates: start: 20200305, end: 20200330

REACTIONS (4)
  - Injection site erythema [Unknown]
  - Dermatitis allergic [Unknown]
  - Injection site induration [Unknown]
  - Injection site pruritus [Unknown]

NARRATIVE: CASE EVENT DATE: 20200305
